FAERS Safety Report 6523444-0 (Version None)
Quarter: 2009Q4

REPORT INFORMATION
  Report Type: 
  Country: None (occurrence: None)
  Receive Date: 20091231
  Receipt Date: 20091221
  Transmission Date: 20100525
  Serious: Yes (Hospitalization)
  Sender: FDA-Public Use
  Company Number: US-JNJFOC-20091206937

PATIENT
  Age: 88 Year
  Sex: Female
  Weight: 59.42 kg

DRUGS (9)
  1. TYLENOL (CAPLET) [Suspect]
     Indication: BACK PAIN
     Route: 048
  2. TYLENOL (CAPLET) [Suspect]
     Indication: ARTHRALGIA
     Route: 048
  3. DITROPAN [Concomitant]
  4. COUMADIN [Concomitant]
  5. PRILOSEC [Concomitant]
  6. CALCIUM [Concomitant]
  7. TOPROL-XL [Concomitant]
  8. STOOL SOFTENER [Concomitant]
  9. REMERON [Concomitant]
     Indication: SLEEP DISORDER

REACTIONS (4)
  - ABDOMINAL PAIN [None]
  - NAUSEA [None]
  - PRODUCT QUALITY ISSUE [None]
  - VOMITING [None]
